FAERS Safety Report 15339276 (Version 1)
Quarter: 2018Q3

REPORT INFORMATION
  Report Type: Spontaneous
  Country: US (occurrence: US)
  Receive Date: 20180831
  Receipt Date: 20180831
  Transmission Date: 20181010
  Serious: No
  Sender: FDA-Public Use
  Company Number: US-BAYER-2018-160904

PATIENT
  Sex: Female

DRUGS (1)
  1. CLIMARA PRO [Suspect]
     Active Substance: ESTRADIOL\LEVONORGESTREL
     Indication: HOT FLUSH
     Dosage: UNK
     Route: 062
     Dates: start: 201806

REACTIONS (5)
  - Circumstance or information capable of leading to medication error [None]
  - Breast discharge [Not Recovered/Not Resolved]
  - Breast enlargement [Not Recovered/Not Resolved]
  - Nipple pain [Not Recovered/Not Resolved]
  - Anisomastia [Not Recovered/Not Resolved]

NARRATIVE: CASE EVENT DATE: 201806
